FAERS Safety Report 20559128 (Version 1)
Quarter: 2022Q1

REPORT INFORMATION
  Report Type: Spontaneous
  Country: US (occurrence: None)
  Receive Date: 20220304
  Receipt Date: 20220304
  Transmission Date: 20220423
  Serious: Yes (Hospitalization)
  Sender: FDA-Public Use
  Company Number: None

PATIENT
  Sex: Female

DRUGS (2)
  1. HUMIRA [Suspect]
     Active Substance: ADALIMUMAB
     Indication: Crohn^s disease
     Dosage: 40 MG/0.8ML?INJECT 1 PEN UNDER THE SKIN (SUBCUTANEOUS  INJECTION) EVERY 2 WEEKS? ?
     Route: 058
     Dates: start: 20210309
  2. HUMIRA [Suspect]
     Active Substance: ADALIMUMAB
     Indication: Kaposi^s sarcoma

REACTIONS (3)
  - COVID-19 [None]
  - Fall [None]
  - Concussion [None]
